FAERS Safety Report 10217075 (Version 2)
Quarter: 2014Q2

REPORT INFORMATION
  Report Type: Spontaneous
  Country: US (occurrence: US)
  Receive Date: 20140604
  Receipt Date: 20140627
  Transmission Date: 20141212
  Serious: No
  Sender: FDA-Public Use
  Company Number: US-JNJFOC-20140515719

PATIENT
  Age: 69 Year
  Sex: Female
  Weight: 64.86 kg

DRUGS (6)
  1. SANDOZ FENTANYL TRANSDERMAL SYSTEM [Suspect]
     Indication: CANCER PAIN
     Route: 062
     Dates: start: 20140508
  2. OMEPRAZOLE [Concomitant]
     Indication: GASTROOESOPHAGEAL REFLUX DISEASE
     Route: 048
  3. GABAPENTIN [Concomitant]
     Indication: NEUROPATHY PERIPHERAL
     Route: 048
     Dates: start: 20140502
  4. WARFARIN [Concomitant]
     Indication: THROMBOSIS
     Route: 048
     Dates: start: 201311
  5. WARFARIN [Concomitant]
     Indication: THROMBOSIS
     Route: 048
     Dates: start: 201311
  6. LORAZEPAM [Concomitant]
     Indication: FEELING OF RELAXATION
     Dosage: AT NIGHT
     Route: 048
     Dates: start: 201312

REACTIONS (2)
  - Wrong technique in drug usage process [Recovered/Resolved]
  - Product adhesion issue [Unknown]
